FAERS Safety Report 4386549-9 (Version None)
Quarter: 2004Q2

REPORT INFORMATION
  Report Type: 
  Country: None (occurrence: None)
  Receive Date: 20040623
  Receipt Date: 20040616
  Transmission Date: 20050107
  Serious: Yes (Hospitalization)
  Sender: FDA-Public Use
  Company Number: 200410272BYL

PATIENT
  Age: 47 Year
  Sex: Male
  Weight: 47 kg

DRUGS (3)
  1. ACETYLSALICYLIC ACID SRT [Suspect]
     Indication: ANGINA PECTORIS
     Dosage: 100 MG, QD, ORAL
     Route: 048
     Dates: start: 20040310, end: 20040507
  2. PANALDINE (TICLOPIDINE HYDROCHLORIDE) [Suspect]
     Indication: ANGINA PECTORIS
     Dosage: 200 MG, BID, ORAL
     Route: 048
     Dates: start: 20040310, end: 20040430
  3. FAMOTIDINE [Suspect]
     Indication: GASTRITIS
     Dosage: 10 MG, BID, ORAL
     Route: 048
     Dates: start: 20040310, end: 20040430

REACTIONS (3)
  - ALANINE AMINOTRANSFERASE INCREASED [None]
  - ASPARTATE AMINOTRANSFERASE INCREASED [None]
  - LIVER DISORDER [None]
